FAERS Safety Report 6253800-X (Version None)
Quarter: 2009Q3

REPORT INFORMATION
  Report Type: 
  Country: None (occurrence: None)
  Receive Date: 20090702
  Receipt Date: 20080103
  Transmission Date: 20100115
  Serious: Yes (Other)
  Sender: FDA-Public Use
  Company Number: US-ASTRAZENECA-2006UW22887

PATIENT
  Age: 12129 Day
  Sex: Female
  Weight: 57.6 kg

DRUGS (26)
  1. SEROQUEL [Suspect]
     Indication: BIPOLAR DISORDER
     Route: 048
     Dates: start: 20010101
  2. SEROQUEL [Suspect]
     Indication: DEPRESSION
     Route: 048
     Dates: start: 20010101
  3. SEROQUEL [Suspect]
     Indication: SLEEP DISORDER
     Route: 048
     Dates: start: 20010101
  4. SEROQUEL [Suspect]
     Indication: ANXIETY
     Route: 048
     Dates: start: 20010101
  5. SEROQUEL [Suspect]
     Dosage: 100 MG - 200 MG DAILY
     Route: 048
     Dates: start: 20030714
  6. SEROQUEL [Suspect]
     Dosage: 100 MG - 200 MG DAILY
     Route: 048
     Dates: start: 20030714
  7. SEROQUEL [Suspect]
     Dosage: 100 MG - 200 MG DAILY
     Route: 048
     Dates: start: 20030714
  8. SEROQUEL [Suspect]
     Dosage: 100 MG - 200 MG DAILY
     Route: 048
     Dates: start: 20030714
  9. XANAX [Concomitant]
     Dates: start: 20010110
  10. TRAZODONE HCL [Concomitant]
     Dates: start: 20010610
  11. ZYPREXA [Concomitant]
     Dosage: 2.5 MG IN THE MORNING, 10 MG AT NIGHT
     Dates: start: 20060521
  12. VISTARIL [Concomitant]
     Dosage: STRENGTH - 25 MG, 50 MG, DOSE - 100 - 200 MG DAILY
     Dates: start: 20051230
  13. ZOLOFT [Concomitant]
     Dosage: 50 MG TO 100 MG DAILY
     Dates: start: 20010609
  14. DEPAKOTE [Concomitant]
     Dates: start: 20020722
  15. CLONAZEPAM [Concomitant]
     Dosage: 0.35 MG - 1.5 MG, 2 MG DAILY
     Dates: start: 20010729
  16. HYDRAZINE [Concomitant]
     Dates: start: 20020722
  17. VICODIN [Concomitant]
     Dates: start: 20020104
  18. ATIVAN [Concomitant]
     Indication: AGITATION
     Dosage: 1 MG TO 2  MG
     Dates: start: 20060524
  19. ATIVAN [Concomitant]
     Indication: INSOMNIA
     Dosage: 1 MG TO 2  MG
     Dates: start: 20060524
  20. ATIVAN [Concomitant]
     Indication: SLEEP DISORDER
     Dosage: 1 MG TO 2  MG
     Dates: start: 20060524
  21. LASIX [Concomitant]
     Route: 048
  22. OXYCODONE [Concomitant]
     Indication: PAIN
     Dosage: 5 MG ONE TABLET ORALLY 4-6 HOURS IF NEEDED
     Dates: start: 20060512
  23. TOPAMAX [Concomitant]
     Dates: start: 20030712
  24. TRILEPTAL [Concomitant]
     Dosage: 150 MG TO 600 MG
     Dates: start: 20030504
  25. LAMICTAL [Concomitant]
     Dates: start: 20030919
  26. RESTORIL [Concomitant]
     Dates: start: 20030712

REACTIONS (4)
  - DIABETES MELLITUS [None]
  - DIABETIC RETINOPATHY [None]
  - PANCREATITIS [None]
  - TYPE 2 DIABETES MELLITUS [None]
